FAERS Safety Report 8556437-2 (Version None)
Quarter: 2012Q3

REPORT INFORMATION
  Report Type: 
  Country: None (occurrence: None)
  Receive Date: 20120801
  Receipt Date: 20120727
  Transmission Date: 20120928
  Serious: Yes (Other)
  Sender: FDA-Public Use
  Company Number: PHHY2012BR065729

PATIENT
  Sex: Female

DRUGS (1)
  1. ZOLEDRONOC ACID [Suspect]
     Dosage: 5MG/100ML
     Route: 042

REACTIONS (6)
  - DECREASED APPETITE [None]
  - CHILLS [None]
  - PAIN [None]
  - HERPES VIRUS INFECTION [None]
  - PULMONARY EMBOLISM [None]
  - BACK PAIN [None]
